FAERS Safety Report 6522078-1 (Version None)
Quarter: 2009Q4

REPORT INFORMATION
  Report Type: 
  Country: None (occurrence: None)
  Receive Date: 20091230
  Receipt Date: 20091229
  Transmission Date: 20100525
  Serious: Yes (Hospitalization)
  Sender: FDA-Public Use
  Company Number: PHHO2009BE14941

PATIENT
  Sex: Male
  Weight: 61 kg

DRUGS (1)
  1. CERTICAN [Suspect]
     Indication: RENAL TRANSPLANT
     Dosage: 1.5 MG/DAY
     Route: 048
     Dates: start: 20060718, end: 20060818

REACTIONS (3)
  - CYST DRAINAGE [None]
  - LYMPHOCELE [None]
  - OEDEMA PERIPHERAL [None]
